FAERS Safety Report 6028314-2 (Version None)
Quarter: 2009Q1

REPORT INFORMATION
  Report Type: 
  Country: None (occurrence: None)
  Receive Date: 20090106
  Receipt Date: 20081224
  Transmission Date: 20090719
  Serious: Yes (Other)
  Sender: FDA-Public Use
  Company Number: JP-PFIZER INC-2009150042

PATIENT

DRUGS (10)
  1. CELECOXIB [Suspect]
     Indication: RHEUMATOID ARTHRITIS
     Dosage: 100 MG, 2X/DAY
     Route: 048
     Dates: start: 20080716, end: 20080825
  2. VOLTAREN [Suspect]
     Dosage: UNK
     Route: 054
  3. METHOTREXATE [Concomitant]
     Route: 048
  4. AZULFIDINE EN-TABS [Concomitant]
     Route: 048
  5. PREDNISOLONE [Concomitant]
     Route: 048
  6. TAKEPRON [Concomitant]
     Indication: PROPHYLAXIS
     Route: 048
  7. FERROMIA [Concomitant]
     Route: 048
  8. IDOMETHINE [Concomitant]
     Route: 048
  9. FOLIAMIN [Concomitant]
     Indication: PROPHYLAXIS
     Route: 048
  10. PROGRAF [Concomitant]
     Route: 048

REACTIONS (1)
  - LIVER DISORDER [None]
